FAERS Safety Report 13979526 (Version 2)
Quarter: 2019Q3

REPORT INFORMATION
  Report Type: Spontaneous
  Country: US (occurrence: US)
  Receive Date: 20170914
  Receipt Date: 20190912
  Transmission Date: 20191004
  Serious: Yes (Hospitalization, Other)
  Sender: FDA-Public Use
  Company Number: US-ASTELLAS-2017US024588

PATIENT
  Sex: Male

DRUGS (2)
  1. XTANDI [Suspect]
     Active Substance: ENZALUTAMIDE
     Indication: HORMONE-REFRACTORY PROSTATE CANCER
     Route: 048
     Dates: start: 20170401
  2. XTANDI [Suspect]
     Active Substance: ENZALUTAMIDE
     Route: 048

REACTIONS (8)
  - Rash macular [Unknown]
  - Back pain [Unknown]
  - Balance disorder [Unknown]
  - Fall [Unknown]
  - Memory impairment [Unknown]
  - Myocardial infarction [Unknown]
  - Musculoskeletal pain [Unknown]
  - Disturbance in attention [Unknown]
